FAERS Safety Report 4495600-7 (Version None)
Quarter: 2004Q4

REPORT INFORMATION
  Report Type: 
  Country: None (occurrence: None)
  Receive Date: 20041108
  Receipt Date: 20040909
  Transmission Date: 20050328
  Serious: Yes (Hospitalization)
  Sender: FDA-Public Use
  Company Number: JP-BRISTOL-MYERS SQUIBB COMPANY-12701694

PATIENT
  Age: 56 Year
  Sex: Female

DRUGS (3)
  1. CYCLOPHOSPHAMIDE [Suspect]
     Indication: BREAST CANCER
     Dosage: START DATE:  19-JUN-2003
     Route: 042
     Dates: start: 20030731, end: 20030731
  2. EPIRUBICIN [Suspect]
     Indication: BREAST CANCER
     Dosage: START DATE:  19-JUN-2003
     Route: 042
     Dates: start: 20030131, end: 20030731
  3. FLUOROURACIL [Suspect]
     Indication: BREAST CANCER
     Dosage: START DATE:  19-JUN-2003
     Route: 042
     Dates: start: 20030131, end: 20030731

REACTIONS (6)
  - ANTIMITOCHONDRIAL ANTIBODY POSITIVE [None]
  - BLOOD IMMUNOGLOBULIN G INCREASED [None]
  - BLOOD IMMUNOGLOBULIN M INCREASED [None]
  - HEPATITIS [None]
  - LIVER DISORDER [None]
  - SCAR [None]
